FAERS Safety Report 12699440 (Version 1)
Quarter: 2016Q3

REPORT INFORMATION
  Report Type: Spontaneous
  Country: US (occurrence: US)
  Receive Date: 20160830
  Receipt Date: 20160830
  Transmission Date: 20161109
  Serious: No
  Sender: FDA-Public Use
  Company Number: US-PERRIGO-16US014855

PATIENT
  Age: 66 Year
  Sex: Female
  Weight: 91.16 kg

DRUGS (2)
  1. CLOBETASOL PROPIONATE. [Suspect]
     Active Substance: CLOBETASOL PROPIONATE
     Indication: DERMATITIS
     Dosage: 1 THIN FILM, WEEKLY
     Route: 061
     Dates: start: 2013, end: 2014
  2. CLOBETASOL PROPIONATE. [Suspect]
     Active Substance: CLOBETASOL PROPIONATE
     Dosage: 1 THIN FILM, WEEKLY
     Route: 061
     Dates: start: 20160403

REACTIONS (4)
  - Application site erythema [Unknown]
  - Accidental exposure to product [Recovered/Resolved]
  - Application site pain [Unknown]
  - Application site pustules [Unknown]

NARRATIVE: CASE EVENT DATE: 20160403
